FAERS Safety Report 11388270 (Version 2)
Quarter: 2015Q4

REPORT INFORMATION
  Report Type: Report from Study
  Country: US (occurrence: US)
  Receive Date: 20150817
  Receipt Date: 20151012
  Transmission Date: 20160304
  Serious: Yes (Hospitalization)
  Sender: FDA-Public Use
  Company Number: US-GILEAD-2015-0167665

PATIENT
  Age: 60 Year
  Sex: Male

DRUGS (12)
  1. AMBRISENTAN [Suspect]
     Active Substance: AMBRISENTAN
     Indication: INTERSTITIAL LUNG DISEASE
  2. METFORMIN [Concomitant]
     Active Substance: METFORMIN HYDROCHLORIDE
  3. WARFARIN [Concomitant]
     Active Substance: WARFARIN
  4. POTASSIUM [Concomitant]
     Active Substance: POTASSIUM
  5. METOLAZONE. [Concomitant]
     Active Substance: METOLAZONE
  6. FUROSEMIDE. [Concomitant]
     Active Substance: FUROSEMIDE
  7. PREDNISONE. [Concomitant]
     Active Substance: PREDNISONE
  8. LOVASTATIN. [Concomitant]
     Active Substance: LOVASTATIN
  9. REVATIO [Concomitant]
     Active Substance: SILDENAFIL CITRATE
  10. AMBRISENTAN [Suspect]
     Active Substance: AMBRISENTAN
     Indication: PULMONARY ARTERIAL HYPERTENSION
     Dosage: 10 MG, QD
     Route: 065
     Dates: start: 20150128
  11. TYVASO [Suspect]
     Active Substance: TREPROSTINIL
     Indication: PRODUCT USED FOR UNKNOWN INDICATION
     Dosage: UNK
     Route: 065
     Dates: start: 20130801
  12. CALCIUM [Concomitant]
     Active Substance: CALCIUM

REACTIONS (2)
  - Dyspnoea [Not Recovered/Not Resolved]
  - Cough [Unknown]

NARRATIVE: CASE EVENT DATE: 20150810
